FAERS Safety Report 5848368-3 (Version None)
Quarter: 2008Q3

REPORT INFORMATION
  Report Type: 
  Country: None (occurrence: None)
  Receive Date: 20080815
  Receipt Date: 20080815
  Transmission Date: 20090109
  Serious: No
  Sender: FDA-Public Use
  Company Number: None

PATIENT
  Age: 37 Year
  Sex: Male
  Weight: 63.5036 kg

DRUGS (1)
  1. STIMATE [Suspect]
     Indication: VON WILLEBRAND'S DISEASE
     Dosage: 1 SPRAY IN ONE NOSTRIL DAILY X 2 NASAL
     Route: 045
     Dates: start: 20080801, end: 20080802

REACTIONS (2)
  - DRUG INEFFECTIVE [None]
  - THERAPEUTIC RESPONSE UNEXPECTED WITH DRUG SUBSTITUTION [None]
